FAERS Safety Report 20412443 (Version 1)
Quarter: 2022Q1

REPORT INFORMATION
  Report Type: Spontaneous
  Country: DE (occurrence: DE)
  Receive Date: 20220201
  Receipt Date: 20220201
  Transmission Date: 20220423
  Serious: Yes (Hospitalization, Other)
  Sender: FDA-Public Use
  Company Number: DE-LUPIN PHARMACEUTICALS INC.-2022-01197

PATIENT
  Age: 24 Year
  Sex: Female

DRUGS (6)
  1. DICLOFENAC [Suspect]
     Active Substance: DICLOFENAC
     Indication: Product used for unknown indication
     Dosage: UNK, (OINTMENT)
     Route: 061
  2. DIPYRONE [Suspect]
     Active Substance: DIPYRONE
     Indication: Product used for unknown indication
     Dosage: UNK
     Route: 048
  3. SULTAMICILLIN [Suspect]
     Active Substance: SULTAMICILLIN
     Indication: Product used for unknown indication
     Dosage: UNK
     Route: 048
  4. TOZINAMERAN [Suspect]
     Active Substance: TOZINAMERAN
     Indication: Diagnostic procedure
     Dosage: UNK
     Route: 023
  5. TOZINAMERAN [Suspect]
     Active Substance: TOZINAMERAN
     Indication: Skin test
  6. IBUPROFEN [Concomitant]
     Active Substance: IBUPROFEN
     Indication: Product used for unknown indication
     Dosage: UNK, (OCCASIONAL INTAKE)
     Route: 048

REACTIONS (1)
  - Anaphylactic reaction [Recovered/Resolved]
